FAERS Safety Report 7156058-2 (Version None)
Quarter: 2010Q4

REPORT INFORMATION
  Report Type: 
  Country: None (occurrence: None)
  Receive Date: 20101214
  Receipt Date: 20101201
  Transmission Date: 20110411
  Serious: Yes (Other)
  Sender: FDA-Public Use
  Company Number: US-RB-016354-10

PATIENT
  Age: 5 Year
  Sex: Male

DRUGS (1)
  1. MUCINEX CHILDREN'S MULTI-SYMPTOM VERY BERRY [Suspect]
     Route: 048

REACTIONS (2)
  - HALLUCINATION [None]
  - PYREXIA [None]
